FAERS Safety Report 16438831 (Version 1)
Quarter: 2019Q2

REPORT INFORMATION
  Report Type: Spontaneous
  Country: DE (occurrence: DE)
  Receive Date: 20190617
  Receipt Date: 20190617
  Transmission Date: 20190711
  Serious: Yes (Other)
  Sender: FDA-Public Use
  Company Number: DE-B.I. PHARMACEUTICALS,INC./RIDGEFIELD-2019-BI-026090

PATIENT
  Age: 61 Year
  Sex: Female

DRUGS (3)
  1. KINZALMONO [Suspect]
     Active Substance: TELMISARTAN
     Indication: HYPERTENSION
     Route: 048
  2. CORTISON [Concomitant]
     Active Substance: CORTISONE ACETATE
     Indication: PRODUCT USED FOR UNKNOWN INDICATION
     Dosage: PATIENT WAS USING CORTISON AS PAST AS WELL AS CONCOMITANT MEDICINE
     Route: 065
  3. ARCOXIA [Concomitant]
     Active Substance: ETORICOXIB
     Indication: PAIN
     Route: 065

REACTIONS (10)
  - Pulmonary fibrosis [Unknown]
  - Urinary incontinence [Unknown]
  - Neck pain [Unknown]
  - Pain in extremity [Unknown]
  - Arthritis [Unknown]
  - Mixed connective tissue disease [Unknown]
  - Musculoskeletal pain [Unknown]
  - Product supply issue [Unknown]
  - Fibromyalgia [Unknown]
  - Wrong technique in product usage process [Unknown]
